FAERS Safety Report 19264821 (Version 1)
Quarter: 2021Q2

REPORT INFORMATION
  Report Type: Report from Study
  Country: US (occurrence: US)
  Receive Date: 20210517
  Receipt Date: 20210517
  Transmission Date: 20210717
  Serious: Yes (Death, Hospitalization, Other)
  Sender: FDA-Public Use
  Company Number: US-AUROBINDO-AUR-APL-2021-019095

PATIENT
  Age: 70 Year
  Sex: Male

DRUGS (1)
  1. ARGATROBAN SODIUM CHLORIDE [Suspect]
     Active Substance: ARGATROBAN
     Indication: HEPARIN-INDUCED THROMBOCYTOPENIA
     Dosage: 0.6 MICROGRAM/KILOGRAM
     Route: 065

REACTIONS (3)
  - Haemorrhage [Fatal]
  - Intraventricular haemorrhage [Fatal]
  - Subarachnoid haemorrhage [Fatal]
